FAERS Safety Report 9362204 (Version 1)
Quarter: 2013Q2

REPORT INFORMATION
  Report Type: Spontaneous
  Country: US (occurrence: US)
  Receive Date: 20130622
  Receipt Date: 20130622
  Transmission Date: 20140414
  Serious: No
  Sender: FDA-Public Use
  Company Number: US-B.I. PHARMACEUTICALS,INC./RIDGEFIELD-2013-BI-17095BP

PATIENT
  Sex: Female
  Weight: 52 kg

DRUGS (4)
  1. ZANTAC 150 (RANITIDINE HYDROCHLORIDE) [Suspect]
     Indication: DYSPEPSIA
     Route: 048
  2. CIPRO [Suspect]
  3. FLOVENT [Concomitant]
     Indication: ASTHMA
     Dosage: 500 MG
     Route: 055
  4. SINGULAIR [Concomitant]
     Indication: ASTHMA
     Dosage: 10 MG

REACTIONS (6)
  - Coeliac disease [Not Recovered/Not Resolved]
  - Hiatus hernia [Not Recovered/Not Resolved]
  - Bronchitis viral [Recovered/Resolved]
  - Bacterial test [Recovered/Resolved]
  - Rash [Recovered/Resolved]
  - Rash [Recovered/Resolved]
